FAERS Safety Report 9770605 (Version 1)
Quarter: 2013Q4

REPORT INFORMATION
  Report Type: Spontaneous
  Country: US (occurrence: US)
  Receive Date: 20131218
  Receipt Date: 20131218
  Transmission Date: 20140711
  Serious: Yes (Other)
  Sender: FDA-Public Use
  Company Number: US-VIIV HEALTHCARE LIMITED-A1053410A

PATIENT
  Sex: Male

DRUGS (17)
  1. EPZICOM [Suspect]
     Indication: ACQUIRED IMMUNODEFICIENCY SYNDROME
     Dosage: 1TAB PER DAY
     Route: 048
     Dates: start: 201306
  2. FISH OIL [Concomitant]
  3. VITAMIN D [Concomitant]
  4. MULTIVITAMIN [Concomitant]
  5. BACTRIM [Concomitant]
  6. ACYCLOVIR [Concomitant]
  7. ISENTRESS [Concomitant]
  8. LYRICA [Concomitant]
  9. LISINOPRIL [Concomitant]
  10. CYCLOBENZAPRINE [Concomitant]
  11. VITAMIN [Concomitant]
  12. BETHANECHOL [Concomitant]
  13. JALYN [Concomitant]
  14. OMEPRAZOLE [Concomitant]
  15. CRESTOR [Concomitant]
  16. FENOFIBRATE [Concomitant]
  17. OXYCODONE [Concomitant]

REACTIONS (5)
  - Hepatitis B [Unknown]
  - Local swelling [Recovered/Resolved]
  - Joint swelling [Recovered/Resolved]
  - Pain [Not Recovered/Not Resolved]
  - Hepatomegaly [Unknown]
